FAERS Safety Report 25649806 (Version 1)
Quarter: 2025Q3

REPORT INFORMATION
  Report Type: Other
  Country: CA (occurrence: CA)
  Receive Date: 20250806
  Receipt Date: 20250806
  Transmission Date: 20251020
  Serious: Yes (Other)
  Sender: APOTEX
  Company Number: CA-PGRTD-001131485

PATIENT
  Sex: Male

DRUGS (1)
  1. ROSUVASTATIN [Suspect]
     Active Substance: ROSUVASTATIN
     Indication: Dyslipidaemia
     Dosage: 1 EVERY 1 DAYS
     Route: 048

REACTIONS (3)
  - Therapy cessation [Not Recovered/Not Resolved]
  - Pruritus [Not Recovered/Not Resolved]
  - Urticaria [Not Recovered/Not Resolved]
